FAERS Safety Report 10739844 (Version 1)
Quarter: 2015Q1

REPORT INFORMATION
  Report Type: Spontaneous
  Country: US (occurrence: US)
  Receive Date: 20150127
  Receipt Date: 20150127
  Transmission Date: 20150721
  Serious: Yes (Death)
  Sender: FDA-Public Use
  Company Number: US-009507513-1501USA007650

PATIENT
  Sex: Female

DRUGS (4)
  1. METHAMPHETAMINE HYDROCHLORIDE. [Suspect]
     Active Substance: METHAMPHETAMINE HYDROCHLORIDE
  2. MORPHINE [Suspect]
     Active Substance: MORPHINE
  3. ALCOHOL. [Suspect]
     Active Substance: ALCOHOL
  4. ORGATRAX [Suspect]
     Active Substance: HYDROXYZINE HYDROCHLORIDE

REACTIONS (2)
  - Drug administration error [Fatal]
  - Toxicity to various agents [Fatal]
